FAERS Safety Report 25725778 (Version 2)
Quarter: 2025Q3

REPORT INFORMATION
  Report Type: Report from Study
  Country: CA (occurrence: CA)
  Receive Date: 20250826
  Receipt Date: 20250929
  Transmission Date: 20251020
  Serious: Yes (Other)
  Sender: ABBVIE
  Company Number: CA-ABBVIE-6428092

PATIENT
  Age: 66 Year
  Sex: Female

DRUGS (1)
  1. HUMIRA [Suspect]
     Active Substance: ADALIMUMAB
     Indication: Hidradenitis
     Dosage: LAST DOSE WAS ON 19 AUG 2025
     Route: 058
     Dates: start: 20210323

REACTIONS (3)
  - Head injury [Recovering/Resolving]
  - Fall [Recovering/Resolving]
  - Skin laceration [Unknown]

NARRATIVE: CASE EVENT DATE: 20250819
